FAERS Safety Report 8407213-2 (Version None)
Quarter: 2012Q2

REPORT INFORMATION
  Report Type: 
  Country: None (occurrence: None)
  Receive Date: 20120604
  Receipt Date: 20120524
  Transmission Date: 20120825
  Serious: Yes (Other)
  Sender: FDA-Public Use
  Company Number: US-ROCHE-1072529

PATIENT
  Age: 45 Year
  Sex: Female

DRUGS (1)
  1. RITUXAN [Suspect]
     Indication: RHEUMATOID ARTHRITIS

REACTIONS (3)
  - MEDICAL DEVICE CHANGE [None]
  - LEUKOCYTOCLASTIC VASCULITIS [None]
  - ATRIAL FIBRILLATION [None]
